FAERS Safety Report 9169017 (Version 2)
Quarter: 2013Q2

REPORT INFORMATION
  Report Type: Spontaneous
  Country: US (occurrence: US)
  Receive Date: 20130318
  Receipt Date: 20130413
  Transmission Date: 20140414
  Serious: No
  Sender: FDA-Public Use
  Company Number: US-TEVA-391199USA

PATIENT
  Age: 39 Year
  Sex: Female

DRUGS (6)
  1. QVAR [Suspect]
     Indication: SINUSITIS
     Route: 045
     Dates: start: 20130212, end: 20130308
  2. PATANASE NS [Concomitant]
     Route: 045
  3. MINOCYCLINE [Concomitant]
     Route: 048
  4. PROZAC [Concomitant]
     Route: 048
  5. ATIVAN [Concomitant]
     Dosage: 1 TO 2 TABLETS AT BEDTIME
     Route: 048
  6. KLONOPIN [Concomitant]
     Dosage: AT BEDTIME
     Route: 048

REACTIONS (1)
  - Drug dispensing error [Recovered/Resolved]
